FAERS Safety Report 12449283 (Version 2)
Quarter: 2016Q3

REPORT INFORMATION
  Report Type: Report from Study
  Country: DE (occurrence: DE)
  Receive Date: 20160608
  Receipt Date: 20160711
  Transmission Date: 20161109
  Serious: Yes (Hospitalization)
  Sender: FDA-Public Use
  Company Number: US-ASTRAZENECA-2016SE60516

PATIENT
  Age: 11 Month
  Sex: Female
  Weight: 6.4 kg

DRUGS (20)
  1. SYNAGIS [Suspect]
     Active Substance: PALIVIZUMAB
     Indication: HYDROCEPHALUS
     Route: 030
     Dates: start: 20151008, end: 20151008
  2. SYNAGIS [Suspect]
     Active Substance: PALIVIZUMAB
     Indication: HYDROCEPHALUS
     Route: 030
     Dates: start: 20151111, end: 20151111
  3. SYNAGIS [Suspect]
     Active Substance: PALIVIZUMAB
     Indication: HYDROCEPHALUS
     Route: 030
     Dates: start: 20160412, end: 20160412
  4. SYNAGIS [Suspect]
     Active Substance: PALIVIZUMAB
     Indication: PREMATURE BABY
     Route: 030
     Dates: start: 20151008, end: 20151008
  5. SYNAGIS [Suspect]
     Active Substance: PALIVIZUMAB
     Indication: ANTIVIRAL PROPHYLAXIS
     Route: 030
     Dates: start: 20151111, end: 20151111
  6. SYNAGIS [Suspect]
     Active Substance: PALIVIZUMAB
     Indication: ANTIVIRAL PROPHYLAXIS
     Route: 030
     Dates: start: 20160118, end: 20160118
  7. LEVETIRACETAM. [Concomitant]
     Active Substance: LEVETIRACETAM
     Indication: PRODUCT USED FOR UNKNOWN INDICATION
     Dosage: 160 MG
     Dates: start: 20150921
  8. SALBUTAMOL [Concomitant]
     Active Substance: ALBUTEROL
     Indication: PRODUCT USED FOR UNKNOWN INDICATION
  9. SYNAGIS [Suspect]
     Active Substance: PALIVIZUMAB
     Indication: ANTIVIRAL PROPHYLAXIS
     Route: 030
     Dates: start: 20151218, end: 20151218
  10. SYNAGIS [Suspect]
     Active Substance: PALIVIZUMAB
     Indication: PREMATURE BABY
     Route: 030
     Dates: start: 20160118, end: 20160118
  11. M-M-R II [Concomitant]
     Active Substance: MEASLES VIRUS STRAIN ENDERS^ ATTENUATED EDMONSTON LIVE ANTIGEN\MUMPS VIRUS STRAIN B LEVEL JERYL LYNN LIVE ANTIGEN\RUBELLA VIRUS STRAIN WISTAR RA 27/3 LIVE ANTIGEN
     Indication: PRODUCT USED FOR UNKNOWN INDICATION
     Dates: start: 20160211, end: 20160211
  12. SYNAGIS [Suspect]
     Active Substance: PALIVIZUMAB
     Indication: PREMATURE BABY
     Route: 030
     Dates: start: 20151111, end: 20151111
  13. SYNAGIS [Suspect]
     Active Substance: PALIVIZUMAB
     Indication: HYDROCEPHALUS
     Route: 030
     Dates: start: 20160118, end: 20160118
  14. SYNAGIS [Suspect]
     Active Substance: PALIVIZUMAB
     Indication: ANTIVIRAL PROPHYLAXIS
     Route: 030
     Dates: start: 20160412, end: 20160412
  15. MONTELUKAST [Concomitant]
     Active Substance: MONTELUKAST SODIUM
     Indication: PRODUCT USED FOR UNKNOWN INDICATION
  16. SYNAGIS [Suspect]
     Active Substance: PALIVIZUMAB
     Indication: HYDROCEPHALUS
     Route: 030
     Dates: start: 20151218, end: 20151218
  17. SYNAGIS [Suspect]
     Active Substance: PALIVIZUMAB
     Indication: PREMATURE BABY
     Route: 030
     Dates: start: 20160412, end: 20160412
  18. VIGANTOLETTEN [Concomitant]
     Active Substance: CHOLECALCIFEROL
     Indication: PRODUCT USED FOR UNKNOWN INDICATION
  19. SYNAGIS [Suspect]
     Active Substance: PALIVIZUMAB
     Indication: ANTIVIRAL PROPHYLAXIS
     Route: 030
     Dates: start: 20151008, end: 20151008
  20. SYNAGIS [Suspect]
     Active Substance: PALIVIZUMAB
     Indication: PREMATURE BABY
     Route: 030
     Dates: start: 20151218, end: 20151218

REACTIONS (3)
  - General physical health deterioration [Not Recovered/Not Resolved]
  - Pneumonia respiratory syncytial viral [Recovered/Resolved]
  - Bronchial hyperreactivity [Recovered/Resolved]

NARRATIVE: CASE EVENT DATE: 201511
